FAERS Safety Report 14273028 (Version 2)
Quarter: 2017Q4

REPORT INFORMATION
  Report Type: Spontaneous
  Country: US (occurrence: US)
  Receive Date: 20171211
  Receipt Date: 20171228
  Transmission Date: 20180321
  Serious: No
  Sender: FDA-Public Use
  Company Number: US-BIOGEN-2017BI00480113

PATIENT
  Sex: Female

DRUGS (2)
  1. TYSABRI [Suspect]
     Active Substance: NATALIZUMAB
     Indication: MULTIPLE SCLEROSIS
     Route: 042
     Dates: start: 20071220
  2. AMPYRA [Concomitant]
     Active Substance: DALFAMPRIDINE
     Indication: MULTIPLE SCLEROSIS
     Route: 065

REACTIONS (9)
  - Eye injury [Not Recovered/Not Resolved]
  - Multiple sclerosis relapse [Not Recovered/Not Resolved]
  - Injury [Not Recovered/Not Resolved]
  - Multiple sclerosis [Unknown]
  - Cognitive disorder [Not Recovered/Not Resolved]
  - Malaise [Unknown]
  - Drug dose omission [Not Recovered/Not Resolved]
  - Head injury [Not Recovered/Not Resolved]
  - Asthenia [Unknown]
